FAERS Safety Report 18188236 (Version 19)
Quarter: 2025Q2

REPORT INFORMATION
  Report Type: Report from Study
  Country: US (occurrence: US)
  Receive Date: 20200824
  Receipt Date: 20250627
  Transmission Date: 20250717
  Serious: Yes (Other)
  Sender: TAKEDA
  Company Number: US-SHIRE-US202027295

PATIENT
  Age: 61 Year
  Sex: Female
  Weight: 122 kg

DRUGS (50)
  1. HUMAN IMMUNOGLOBULIN G [Suspect]
     Active Substance: HUMAN IMMUNOGLOBULIN G
     Indication: IgG deficiency
     Dosage: 24 GRAM, 1/WEEK
     Dates: start: 20170315
  2. HUMAN IMMUNOGLOBULIN G [Suspect]
     Active Substance: HUMAN IMMUNOGLOBULIN G
     Indication: Bacterial infection
  3. ACETAMINOPHEN [Concomitant]
     Active Substance: ACETAMINOPHEN
  4. SPIRIVA RESPIMAT [Concomitant]
     Active Substance: TIOTROPIUM BROMIDE
  5. FLUTICASONE PROPIONATE [Concomitant]
     Active Substance: FLUTICASONE PROPIONATE
  6. METOPROLOL TARTRATE [Concomitant]
     Active Substance: METOPROLOL TARTRATE
  7. HYDROCHLOROTHIAZIDE\TRIAMTERENE [Concomitant]
     Active Substance: HYDROCHLOROTHIAZIDE\TRIAMTERENE
  8. SINGULAIR [Concomitant]
     Active Substance: MONTELUKAST SODIUM
  9. TIZANIDINE HYDROCHLORIDE [Concomitant]
     Active Substance: TIZANIDINE HYDROCHLORIDE
  10. CVS coenzyme q 10 [Concomitant]
  11. BREO ELLIPTA [Concomitant]
     Active Substance: FLUTICASONE FUROATE\VILANTEROL TRIFENATATE
  12. PANTOPRAZOLE [Concomitant]
     Active Substance: PANTOPRAZOLE
  13. BANOPHEN [Concomitant]
     Active Substance: DIPHENHYDRAMINE HYDROCHLORIDE
  14. AZELASTINE HYDROCHLORIDE [Concomitant]
     Active Substance: AZELASTINE HYDROCHLORIDE
  15. CLOTRIMAZOLE [Concomitant]
     Active Substance: CLOTRIMAZOLE
  16. ATORVASTATIN [Concomitant]
     Active Substance: ATORVASTATIN
  17. INCRUSE ELLIPTA [Concomitant]
     Active Substance: UMECLIDINIUM BROMIDE
  18. BETAMETHASONE DIPROPIONATE\CLOTRIMAZOLE [Concomitant]
     Active Substance: BETAMETHASONE DIPROPIONATE\CLOTRIMAZOLE
  19. LIDOCAINE [Concomitant]
     Active Substance: LIDOCAINE
  20. EPIPEN [Concomitant]
     Active Substance: EPINEPHRINE
  21. MUCINEX [Concomitant]
     Active Substance: GUAIFENESIN
  22. KRILL OIL [Concomitant]
     Active Substance: DIETARY SUPPLEMENT\KRILL OIL
  23. MORPHINE SULFATE [Concomitant]
     Active Substance: MORPHINE SULFATE
  24. INCRUSE ELLIPTA [Concomitant]
     Active Substance: UMECLIDINIUM BROMIDE
  25. AZELASTINE [Concomitant]
     Active Substance: AZELASTINE
  26. DESONIDE [Concomitant]
     Active Substance: DESONIDE
  27. DIPHENHYDRAMINE HYDROCHLORIDE [Concomitant]
     Active Substance: DIPHENHYDRAMINE HYDROCHLORIDE
  28. TOLTERODINE [Concomitant]
     Active Substance: TOLTERODINE
  29. VITAMIN B [Concomitant]
     Active Substance: VITAMIN B
  30. HYOSCYAMINE [Concomitant]
     Active Substance: HYOSCYAMINE
  31. ONDANSETRON [Concomitant]
     Active Substance: ONDANSETRON
  32. ONDANSETRON HYDROCHLORIDE [Concomitant]
     Active Substance: ONDANSETRON HYDROCHLORIDE
  33. SYNTHROID [Concomitant]
     Active Substance: LEVOTHYROXINE SODIUM
  34. FLUOCINONIDE [Concomitant]
     Active Substance: FLUOCINONIDE
  35. MAGNESIUM OXIDE [Concomitant]
     Active Substance: MAGNESIUM OXIDE
  36. LYRICA [Concomitant]
     Active Substance: PREGABALIN
  37. DIPHENHYDRAMINE [Concomitant]
     Active Substance: DIPHENHYDRAMINE
  38. EPINEPHRINE [Concomitant]
     Active Substance: EPINEPHRINE
  39. FLONASE [Concomitant]
     Active Substance: FLUTICASONE PROPIONATE
  40. MORPHINE [Concomitant]
     Active Substance: MORPHINE
  41. VITAMIN B12 [Concomitant]
     Active Substance: CYANOCOBALAMIN
  42. ATORVASTATIN CALCIUM [Concomitant]
     Active Substance: ATORVASTATIN CALCIUM
  43. HYOSCYAMINE SULFATE [Concomitant]
     Active Substance: HYOSCYAMINE SULFATE
  44. TIZANIDINE HYDROCHLORIDE [Concomitant]
     Active Substance: TIZANIDINE HYDROCHLORIDE
  45. TOLTERODINE TARTRATE [Concomitant]
     Active Substance: TOLTERODINE TARTRATE
  46. PANTOPRAZOLE SODIUM [Concomitant]
     Active Substance: PANTOPRAZOLE SODIUM
  47. ALLEGRA ALLERGY [Concomitant]
     Active Substance: FEXOFENADINE HYDROCHLORIDE
  48. TRIAMTERENE [Concomitant]
     Active Substance: TRIAMTERENE
  49. SACCHAROMYCES CEREVISIAE [Concomitant]
     Active Substance: SACCHAROMYCES CEREVISIAE
  50. PROAIR HFA [Concomitant]
     Active Substance: ALBUTEROL SULFATE

REACTIONS (13)
  - Pneumonia [Unknown]
  - Bronchitis [Unknown]
  - Tooth abscess [Unknown]
  - Multiple allergies [Unknown]
  - Product dose omission issue [Unknown]
  - Infection [Not Recovered/Not Resolved]
  - Obstruction [Unknown]
  - Respiratory tract infection [Unknown]
  - Dysphonia [Unknown]
  - Respiratory disorder [Not Recovered/Not Resolved]
  - Asthma [Unknown]
  - Cough [Unknown]
  - Infusion site pain [Unknown]

NARRATIVE: CASE EVENT DATE: 20200730
